FAERS Safety Report 4838483-5 (Version None)
Quarter: 2005Q4

REPORT INFORMATION
  Report Type: 
  Country: None (occurrence: None)
  Receive Date: 20051123
  Receipt Date: 20051114
  Transmission Date: 20060501
  Serious: Yes (Death)
  Sender: FDA-Public Use
  Company Number: 2005BH002916

PATIENT
  Sex: Female

DRUGS (5)
  1. FENTANYL CITRATE [Suspect]
  2. FAMOTIDINE [Suspect]
     Dosage: 20 MG
  3. VANCOMYCIN [Suspect]
  4. LACTATED RINGER'S IN PLASTIC CONTAINER [Suspect]
  5. PEPCID [Suspect]

REACTIONS (2)
  - CARDIO-RESPIRATORY ARREST [None]
  - OXYGEN SATURATION DECREASED [None]
